FAERS Safety Report 10763902 (Version 3)
Quarter: 2015Q1

REPORT INFORMATION
  Report Type: Report from Study
  Country: DE (occurrence: DE)
  Receive Date: 20150204
  Receipt Date: 20150219
  Transmission Date: 20150721
  Serious: Yes (Death, Hospitalization)
  Sender: FDA-Public Use
  Company Number: DE-ABBVIE-15P-062-1342409-00

PATIENT
  Age: 93 Year
  Sex: Male
  Weight: 74 kg

DRUGS (1)
  1. LEUPRORELIN [Suspect]
     Active Substance: LEUPROLIDE ACETATE
     Indication: PROSTATE CANCER
     Route: 058
     Dates: start: 20120423, end: 20131010

REACTIONS (2)
  - Prostate cancer [Fatal]
  - Radius fracture [Recovered/Resolved]

NARRATIVE: CASE EVENT DATE: 20121001
